FAERS Safety Report 24437801 (Version 1)
Quarter: 2024Q4

REPORT INFORMATION
  Report Type: Spontaneous
  Country: US (occurrence: US)
  Receive Date: 20241015
  Receipt Date: 20241015
  Transmission Date: 20250115
  Serious: Yes (Other)
  Sender: AMGEN
  Company Number: US-AMGEN-USASP2024199811

PATIENT
  Age: 52 Year
  Sex: Male

DRUGS (10)
  1. PREDNISONE [Suspect]
     Active Substance: PREDNISONE
     Indication: Prophylaxis against transplant rejection
     Dosage: UNK
     Route: 065
     Dates: start: 202211
  2. DARBEPOETIN ALFA [Suspect]
     Active Substance: DARBEPOETIN ALFA
     Indication: Anaemia
     Dosage: UNK, Q2WK (INJECTIONS)
     Route: 065
     Dates: start: 202301
  3. ERYTHROPOIETIN [Suspect]
     Active Substance: ERYTHROPOIETIN
     Indication: Anaemia
     Dosage: UNK
     Route: 065
  4. FOLIC ACID [Concomitant]
     Active Substance: FOLIC ACID
     Indication: Anaemia
     Dosage: 1 MILLIGRAM, QD
  5. DEFERASIROX [Concomitant]
     Active Substance: DEFERASIROX
     Indication: Anaemia
     Dosage: UNK, AT 50% DOSE REDUCTION
  6. MITAPIVAT [Concomitant]
     Active Substance: MITAPIVAT
     Indication: Anaemia
     Dosage: 5 MILLIGRAM, BID
  7. MITAPIVAT [Concomitant]
     Active Substance: MITAPIVAT
     Dosage: 20 MILLIGRAM, BID (DOSE INCREASED)
  8. MITAPIVAT [Concomitant]
     Active Substance: MITAPIVAT
     Dosage: 50 MILLIGRAM, BID (MAX INCREASED DOSE)
  9. MYCOPHENOLIC ACID [Concomitant]
     Active Substance: MYCOPHENOLIC ACID
     Indication: Liver transplant
     Dosage: UNK
     Dates: start: 202211
  10. TACROLIMUS [Concomitant]
     Active Substance: TACROLIMUS
     Indication: Liver transplant
     Dosage: UNK
     Dates: start: 202211

REACTIONS (3)
  - Upper gastrointestinal haemorrhage [Unknown]
  - Chronic kidney disease [Unknown]
  - COVID-19 [Unknown]

NARRATIVE: CASE EVENT DATE: 20230101
